FAERS Safety Report 11108810 (Version 1)
Quarter: 2015Q2

REPORT INFORMATION
  Report Type: Spontaneous
  Country: US (occurrence: None)
  Receive Date: 20150511
  Receipt Date: 20150511
  Transmission Date: 20150821
  Serious: Yes (Other)
  Sender: FDA-Public Use
  Company Number: None

PATIENT
  Age: 4 Year
  Sex: Female

DRUGS (8)
  1. LIL CRITTERS VITAMINS [Concomitant]
  2. ADVAIR HFA [Concomitant]
     Active Substance: FLUTICASONE PROPIONATE\SALMETEROL XINAFOATE
  3. VERAMYST [Concomitant]
     Active Substance: FLUTICASONE FUROATE
  4. SINGULAIR [Suspect]
     Active Substance: MONTELUKAST SODIUM
     Indication: ASTHMA
     Route: 048
  5. ALBUTEROL. [Concomitant]
     Active Substance: ALBUTEROL
  6. CLARITIN [Concomitant]
     Active Substance: LORATADINE
  7. SINGULAIR [Suspect]
     Active Substance: MONTELUKAST SODIUM
     Indication: MULTIPLE ALLERGIES
     Route: 048
  8. ZADITOR [Concomitant]
     Active Substance: KETOTIFEN FUMARATE

REACTIONS (6)
  - Suicidal ideation [None]
  - Homicidal ideation [None]
  - Mental disorder [None]
  - Product label issue [None]
  - Nightmare [None]
  - Personality change [None]
